FAERS Safety Report 8573003-3 (Version None)
Quarter: 2012Q3

REPORT INFORMATION
  Report Type: 
  Country: None (occurrence: None)
  Receive Date: 20120806
  Receipt Date: 20120806
  Transmission Date: 20120928
  Serious: Yes (Other)
  Sender: FDA-Public Use
  Company Number: US-PFIZER INC-2012181234

PATIENT
  Age: 60 Year
  Sex: Female
  Weight: 100 kg

DRUGS (3)
  1. PLAVIX [Concomitant]
     Indication: ANTICOAGULANT THERAPY
     Dosage: 75 MG, DAILY
  2. LIPITOR [Suspect]
     Indication: BLOOD CHOLESTEROL INCREASED
     Dosage: UNK
     Dates: start: 20020101
  3. DIOVAN [Concomitant]
     Indication: HYPERTENSION
     Dosage: 160 MG, DAILY

REACTIONS (4)
  - STENT PLACEMENT [None]
  - ABASIA [None]
  - ARTHRALGIA [None]
  - MUSCULAR WEAKNESS [None]
